FAERS Safety Report 9767330 (Version 13)
Quarter: 2015Q1

REPORT INFORMATION
  Report Type: Report from Study
  Country: US (occurrence: US)
  Receive Date: 20131217
  Receipt Date: 20150129
  Transmission Date: 20150721
  Serious: Yes (Hospitalization, Other)
  Sender: FDA-Public Use
  Company Number: US-SA-2013SA128368

PATIENT
  Age: 50 Year
  Sex: Female
  Weight: 46.2 kg

DRUGS (17)
  1. DIPHENHYDRAMINE HYDROCHLORIDE. [Concomitant]
     Active Substance: DIPHENHYDRAMINE HYDROCHLORIDE
     Indication: INSOMNIA
  2. AMPYRA [Concomitant]
     Active Substance: DALFAMPRIDINE
  3. AUBAGIO [Suspect]
     Active Substance: TERIFLUNOMIDE
     Indication: MULTIPLE SCLEROSIS
     Route: 048
     Dates: start: 20131119
  4. KEPPRA [Suspect]
     Active Substance: LEVETIRACETAM
     Indication: SEIZURE
     Route: 048
     Dates: start: 20131206, end: 20131223
  5. LORAZEPAM. [Concomitant]
     Active Substance: LORAZEPAM
     Indication: INSOMNIA
  6. ACETAMINOPHEN. [Concomitant]
     Active Substance: ACETAMINOPHEN
     Indication: PAIN
  7. VITAMIN B COMPLEX [Concomitant]
     Active Substance: CYANOCOBALAMIN\DEXPANTHENOL\NIACINAMIDE\PYRIDOXINE HYDROCHLORIDE\RIBOFLAVIN 5^-PHOSPHATE SODIUM\THIAMINE HYDROCHLORIDE\VITAMIN B COMPLEX
     Indication: PROPHYLAXIS
  8. ALL OTHER THERAPEUTIC PRODUCTS [Concomitant]
     Active Substance: UNSPECIFIED INGREDIENT
     Indication: MULTIPLE SCLEROSIS
  9. LORAZEPAM. [Concomitant]
     Active Substance: LORAZEPAM
     Indication: ANXIETY
  10. KRILL OIL [Concomitant]
     Active Substance: DIETARY SUPPLEMENT
     Indication: CARDIAC DISORDER
  11. VITAMIN B COMPLEX [Concomitant]
     Active Substance: CYANOCOBALAMIN\DEXPANTHENOL\NIACINAMIDE\PYRIDOXINE HYDROCHLORIDE\RIBOFLAVIN 5^-PHOSPHATE SODIUM\THIAMINE HYDROCHLORIDE\VITAMIN B COMPLEX
     Indication: ANTIOXIDANT THERAPY
  12. MARIJUANA [Concomitant]
     Active Substance: CANNABIS SATIVA SUBSP. INDICA TOP
     Indication: PAIN
  13. BENEFIBER [Concomitant]
     Active Substance: STARCH, WHEAT
     Indication: DYSPEPSIA
  14. MARIJUANA [Concomitant]
     Active Substance: CANNABIS SATIVA SUBSP. INDICA TOP
     Indication: DECREASED APPETITE
  15. CHONDROITIN SULFATE (BOVINE)\GLUCOSAMINE SULFATE [Concomitant]
     Active Substance: CHONDROITIN SULFATE (BOVINE)\GLUCOSAMINE SULFATE
  16. POTASSIUM [Concomitant]
     Active Substance: POTASSIUM
     Indication: MUSCLE SPASMS
  17. ASPIRIN. [Concomitant]
     Active Substance: ASPIRIN
     Indication: PAIN

REACTIONS (16)
  - Gastrointestinal pain [Unknown]
  - Loss of consciousness [Unknown]
  - Multiple sclerosis relapse [Recovered/Resolved]
  - Thinking abnormal [Unknown]
  - Fatigue [Unknown]
  - Amnesia [Unknown]
  - Feeling abnormal [Unknown]
  - Confusional state [Not Recovered/Not Resolved]
  - Hypersomnia [Unknown]
  - Seizure [Not Recovered/Not Resolved]
  - Extra dose administered [Unknown]
  - Flatulence [Unknown]
  - Pruritus [Unknown]
  - Drug ineffective [Unknown]
  - Constipation [Recovered/Resolved]
  - Dyskinesia [Unknown]
